FAERS Safety Report 20754139 (Version 1)
Quarter: 2022Q2

REPORT INFORMATION
  Report Type: Spontaneous
  Country: US (occurrence: None)
  Receive Date: 20220426
  Receipt Date: 20220426
  Transmission Date: 20220721
  Serious: No
  Sender: FDA-Public Use
  Company Number: US-ROCHE-2889267

PATIENT
  Sex: Male
  Weight: 80.812 kg

DRUGS (10)
  1. ESBRIET [Suspect]
     Active Substance: PIRFENIDONE
     Indication: Idiopathic pulmonary fibrosis
     Dosage: THREE 267MG PILLS THREE TIMES A DAY
     Route: 048
     Dates: start: 20210729
  2. ESBRIET [Suspect]
     Active Substance: PIRFENIDONE
     Dosage: THREE 267MG PILLS THREE TIMES A DAY
     Route: 048
  3. AMITRIPTYLINE [Concomitant]
     Active Substance: AMITRIPTYLINE
  4. AMLODIPINE [Concomitant]
     Active Substance: AMLODIPINE BESYLATE
  5. BUSPIRONE [Concomitant]
     Active Substance: BUSPIRONE HYDROCHLORIDE
  6. CARVEDILOL [Concomitant]
     Active Substance: CARVEDILOL
  7. LOSARTAN [Concomitant]
     Active Substance: LOSARTAN
  8. DORZOLAMIDE [Concomitant]
     Active Substance: DORZOLAMIDE
  9. LATANOPROST [Concomitant]
     Active Substance: LATANOPROST
     Dosage: AT BEDTIME
  10. TIMOLOL [Concomitant]
     Active Substance: TIMOLOL

REACTIONS (2)
  - Treatment noncompliance [Unknown]
  - Nausea [Recovered/Resolved]
